FAERS Safety Report 22003284 (Version 1)
Quarter: 2023Q1

REPORT INFORMATION
  Report Type: Spontaneous
  Country: SE (occurrence: SE)
  Receive Date: 20230217
  Receipt Date: 20230217
  Transmission Date: 20230417
  Serious: Yes (Other)
  Sender: FDA-Public Use
  Company Number: None

PATIENT
  Age: 56 Year
  Sex: Female
  Weight: 125 kg

DRUGS (1)
  1. VENLAFAXINE [Suspect]
     Active Substance: VENLAFAXINE HYDROCHLORIDE
     Indication: Depression
     Dosage: 150 MG 1X1, VENLAFAXINE ACTAVIS 150 MG SUSTAINED-RELEASE CAPSULE, HARD, UNIT DOSE: 150 MG , FREQUENC
     Dates: start: 20160108, end: 20210612

REACTIONS (14)
  - Palpitations [Recovering/Resolving]
  - Dizziness [Recovering/Resolving]
  - Electric shock sensation [Recovering/Resolving]
  - Photophobia [Recovering/Resolving]
  - Hypoaesthesia [Recovering/Resolving]
  - Irritability [Recovering/Resolving]
  - Headache [Recovering/Resolving]
  - Influenza like illness [Recovered/Resolved]
  - Hyperacusis [Not Recovered/Not Resolved]
  - Aggression [Recovering/Resolving]
  - Formication [Recovering/Resolving]
  - Feeling of body temperature change [Recovering/Resolving]
  - Memory impairment [Not Recovered/Not Resolved]
  - Withdrawal syndrome [Recovering/Resolving]

NARRATIVE: CASE EVENT DATE: 20210105
